FAERS Safety Report 10472337 (Version 1)
Quarter: 2014Q3

REPORT INFORMATION
  Report Type: Spontaneous
  Country: GB (occurrence: GB)
  Receive Date: 20140924
  Receipt Date: 20140924
  Transmission Date: 20150326
  Serious: Yes (Hospitalization)
  Sender: FDA-Public Use
  Company Number: GB-TEVA-510403ISR

PATIENT
  Age: 78 Year
  Sex: Male

DRUGS (5)
  1. RAMIPRIL. [Suspect]
     Active Substance: RAMIPRIL
     Indication: HYPERTENSION
     Dosage: 5 MILLIGRAM DAILY; LONG TERM USE
     Route: 048
     Dates: end: 20140905
  2. TRIMETHOPRIM. [Suspect]
     Active Substance: TRIMETHOPRIM
     Indication: URINARY TRACT INFECTION
     Dosage: 400 MILLIGRAM DAILY; ACUTE COURSE
     Route: 048
     Dates: end: 20140905
  3. WARFARIN [Concomitant]
     Active Substance: WARFARIN
  4. BISOPROLOL [Concomitant]
     Active Substance: BISOPROLOL
  5. BUMETANIDE. [Concomitant]
     Active Substance: BUMETANIDE

REACTIONS (3)
  - Hyperkalaemia [Not Recovered/Not Resolved]
  - Dehydration [Recovered/Resolved]
  - Renal failure acute [Recovering/Resolving]

NARRATIVE: CASE EVENT DATE: 20140805
